FAERS Safety Report 6761305-2 (Version None)
Quarter: 2010Q2

REPORT INFORMATION
  Report Type: 
  Country: None (occurrence: None)
  Receive Date: 20100608
  Receipt Date: 20100526
  Transmission Date: 20101027
  Serious: Yes (Hospitalization)
  Sender: FDA-Public Use
  Company Number: PHHY2010US34443

PATIENT
  Sex: Female

DRUGS (2)
  1. EXJADE [Suspect]
     Indication: IRON METABOLISM DISORDER
     Dosage: 1000 MG, QD
     Route: 048
     Dates: start: 20100312
  2. WHOLE BLOOD [Concomitant]

REACTIONS (2)
  - EYE DISORDER [None]
  - HEADACHE [None]
